FAERS Safety Report 13906808 (Version 1)
Quarter: 2017Q3

REPORT INFORMATION
  Report Type: Spontaneous
  Country: US (occurrence: US)
  Receive Date: 20170825
  Receipt Date: 20170825
  Transmission Date: 20171127
  Serious: No
  Sender: FDA-Public Use
  Company Number: US-INCYTE CORPORATION-2017IN006960

PATIENT

DRUGS (1)
  1. JAKAFI [Suspect]
     Active Substance: RUXOLITINIB
     Indication: MYELOFIBROSIS
     Dosage: 20 MG, BID
     Route: 048

REACTIONS (6)
  - Chills [Unknown]
  - Abdominal distension [Unknown]
  - Dyspnoea [Unknown]
  - Splenomegaly [Unknown]
  - Night sweats [Unknown]
  - Peripheral swelling [Unknown]
